FAERS Safety Report 5254334-1 (Version None)
Quarter: 2007Q1

REPORT INFORMATION
  Report Type: 
  Country: None (occurrence: None)
  Receive Date: 20070302
  Receipt Date: 20070223
  Transmission Date: 20070707
  Serious: Yes (Hospitalization, Other)
  Sender: FDA-Public Use
  Company Number: SE-ABBOTT-06P-150-0338684-00

PATIENT
  Sex: Female

DRUGS (22)
  1. HUMIRA [Suspect]
     Indication: RHEUMATOID ARTHRITIS
     Route: 058
     Dates: start: 20030228
  2. SULFASALAZINE [Concomitant]
     Indication: DRUG USE FOR UNKNOWN INDICATION
     Route: 048
  3. PREDNISOLONE [Concomitant]
     Indication: DRUG USE FOR UNKNOWN INDICATION
     Route: 048
  4. ACTRAPID [Concomitant]
     Indication: DRUG USE FOR UNKNOWN INDICATION
     Dosage: 18 U + 14 U + 14 U; ROUTE: SOLUTION FOR INJECTION
  5. CANDESARTAN CILEXETIL [Concomitant]
     Indication: DRUG USE FOR UNKNOWN INDICATION
     Route: 048
  6. CYANOCOBALAMIN [Concomitant]
     Indication: DRUG USE FOR UNKNOWN INDICATION
     Dosage: 1 ML PER MONTH
     Route: 030
  7. LEKOVIT CA [Concomitant]
     Indication: DRUG USE FOR UNKNOWN INDICATION
     Route: 048
  8. BISOPROLOL FUMARATE [Concomitant]
     Indication: DRUG USE FOR UNKNOWN INDICATION
     Route: 048
  9. SODIUM FLUORIDE [Concomitant]
     Indication: DRUG USE FOR UNKNOWN INDICATION
     Route: 048
  10. SODIUM FLUORIDE [Concomitant]
     Dosage: ROUTE: CHEWING GUM
  11. GAVISCON [Concomitant]
     Indication: DRUG USE FOR UNKNOWN INDICATION
     Route: 048
  12. ISOSORBIDE MONONITRATE [Concomitant]
     Indication: DRUG USE FOR UNKNOWN INDICATION
     Route: 048
  13. FUROSEMIDE [Concomitant]
     Indication: DRUG USE FOR UNKNOWN INDICATION
     Route: 048
  14. LAKTULOS [Concomitant]
     Indication: DRUG USE FOR UNKNOWN INDICATION
     Dosage: TOTAL DAILY DOSE: 10-15ML; UNIT DOSE: 670 MG/ML, 10-15 ML/DAY WHEN NEEDED
     Route: 048
  15. INSULIN GLARGINE [Concomitant]
     Indication: DRUG USE FOR UNKNOWN INDICATION
     Dosage: TOTAL DAILY DOSE: 20 IE; UNIT DOSE: 100 E/ML, 20 IE AT NIGHT; ROUTE: INJECTION SOLUTION
  16. OMEPRAZOLE MAGNESIUM [Concomitant]
     Indication: DRUG USE FOR UNKNOWN INDICATION
     Route: 048
  17. MINIFOM [Concomitant]
     Indication: DRUG USE FOR UNKNOWN INDICATION
     Dosage: 200-600 MG; 1-3 CAP/DAY WHEN NEEDED
     Route: 048
  18. TRAMADOL HYDROCHLORIDE [Concomitant]
     Indication: DRUG USE FOR UNKNOWN INDICATION
     Dosage: TOTAL DAILY DOSE: 50-100MG
     Route: 048
  19. AMLODIPINE BESYLATE [Concomitant]
     Indication: DRUG USE FOR UNKNOWN INDICATION
     Route: 048
  20. KETOPROFEN [Concomitant]
     Indication: DRUG USE FOR UNKNOWN INDICATION
     Dosage: TOTAL DAILY DOSE: 2.5-7.5MG
     Route: 061
  21. ACETAMINOPHEN [Concomitant]
     Indication: DRUG USE FOR UNKNOWN INDICATION
     Dosage: TOTAL DAILY DOSE: 500-1000 MG
     Route: 048
  22. SIMVASTATIN [Concomitant]
     Indication: DRUG USE FOR UNKNOWN INDICATION
     Route: 048

REACTIONS (2)
  - FALL [None]
  - FEMUR FRACTURE [None]
